FAERS Safety Report 8343666-6 (Version None)
Quarter: 2012Q2

REPORT INFORMATION
  Report Type: 
  Country: None (occurrence: None)
  Receive Date: 20120508
  Receipt Date: 20120425
  Transmission Date: 20120825
  Serious: Yes (Other)
  Sender: FDA-Public Use
  Company Number: AR-AMGEN-ARGSP2012026934

PATIENT
  Age: 60 Year
  Sex: Female

DRUGS (3)
  1. ENALAPRIL MALEATE [Concomitant]
     Dosage: 10 MG, 1X/DAY
     Route: 048
  2. RANITIDINE [Concomitant]
     Dosage: UNK
     Route: 048
  3. ENBREL [Suspect]
     Indication: RHEUMATOID ARTHRITIS
     Dosage: 50 MG, WEEKLY
     Route: 058
     Dates: start: 20080114

REACTIONS (2)
  - HYPERTENSION [None]
  - EYE HAEMORRHAGE [None]
